FAERS Safety Report 7761880-5 (Version None)
Quarter: 2011Q3

REPORT INFORMATION
  Report Type: 
  Country: None (occurrence: None)
  Receive Date: 20110919
  Receipt Date: 20110919
  Transmission Date: 20111222
  Serious: Yes (Hospitalization)
  Sender: FDA-Public Use
  Company Number: None

PATIENT
  Sex: Female
  Weight: 83.0083 kg

DRUGS (1)
  1. XELODA [Suspect]
     Indication: COLON CANCER METASTATIC
     Dosage: 2000 MGS BID 047
     Route: 048
     Dates: start: 20110822, end: 20110824

REACTIONS (4)
  - DIALYSIS [None]
  - DIARRHOEA [None]
  - RENAL FAILURE [None]
  - VOMITING [None]
